FAERS Safety Report 4611076-0 (Version None)
Quarter: 2005Q1

REPORT INFORMATION
  Report Type: 
  Country: None (occurrence: None)
  Receive Date: 20050316
  Receipt Date: 20050316
  Transmission Date: 20050727
  Serious: Yes (Hospitalization)
  Sender: FDA-Public Use
  Company Number: None

PATIENT
  Age: 78 Year
  Sex: Male
  Weight: 111 kg

DRUGS (19)
  1. LISINOPRIL [Suspect]
     Indication: HYPERTENSION
     Dosage: 10 MG QD, 10MG QD, ORAL
     Route: 048
  2. LACTULOSE [Concomitant]
  3. ACETAMINOPHEN [Concomitant]
  4. METOPROLOL TARTRATE [Concomitant]
  5. FERROUS SO4 [Concomitant]
  6. NITROGLYCERIN [Concomitant]
  7. MEGESTROL ACETATE [Concomitant]
  8. THEOPHYLLINE [Concomitant]
  9. METOCLOPRAMIDE HCL [Concomitant]
  10. ASPIRIN [Concomitant]
  11. SIMETHICONE [Concomitant]
  12. OMEPRAZOLE [Concomitant]
  13. ALBUTEROL [Concomitant]
  14. ABSORBASE [Concomitant]
  15. SIMVASTATIN [Concomitant]
  16. MILK OF MAGNESIA [Concomitant]
  17. NITROGLYCERIN [Concomitant]
  18. SENNOSIDES [Concomitant]
  19. SENNOSIDES [Concomitant]

REACTIONS (1)
  - DYSURIA [None]
